FAERS Safety Report 4493598-9 (Version None)
Quarter: 2004Q4

REPORT INFORMATION
  Report Type: 
  Country: None (occurrence: None)
  Receive Date: 20041103
  Receipt Date: 20041103
  Transmission Date: 20050328
  Serious: Yes (Hospitalization)
  Sender: FDA-Public Use
  Company Number: None

PATIENT
  Age: 73 Year
  Sex: Male
  Weight: 92.0802 kg

DRUGS (3)
  1. ESTRAMUSTINE [Suspect]
     Indication: METASTASES TO PROSTATE
     Dosage: 140 MG BID ORAL
     Route: 048
     Dates: start: 20040726, end: 20041019
  2. DOCETAXEL [Suspect]
     Indication: METASTASES TO PROSTATE
     Dosage: 40 MG/M2 1 HR ON ? IV
     Route: 042
     Dates: start: 20040727, end: 20041012
  3. COREG [Concomitant]

REACTIONS (15)
  - ADRENAL INSUFFICIENCY [None]
  - BETA HAEMOLYTIC STREPTOCOCCAL INFECTION [None]
  - BODY TEMPERATURE INCREASED [None]
  - CALCULUS URETERIC [None]
  - CARDIAC FAILURE CONGESTIVE [None]
  - CHOLELITHIASIS [None]
  - CULTURE URINE POSITIVE [None]
  - DIZZINESS POSTURAL [None]
  - FLUID OVERLOAD [None]
  - HAEMATURIA [None]
  - HYDROURETER [None]
  - HYPERTENSION [None]
  - HYPOTENSION [None]
  - MARKEDLY REDUCED DIETARY INTAKE [None]
  - PROSTATIC HAEMORRHAGE [None]
